FAERS Safety Report 7910731-4 (Version None)
Quarter: 2011Q4

REPORT INFORMATION
  Report Type: 
  Country: None (occurrence: None)
  Receive Date: 20111112
  Receipt Date: 20110502
  Transmission Date: 20120403
  Serious: Yes (Death, Hospitalization)
  Sender: FDA-Public Use
  Company Number: NL-ASTRAZENECA-2000AP05753

PATIENT
  Age: 31 Year
  Sex: Female

DRUGS (2)
  1. PROPOFOL [Suspect]
     Indication: BRAIN INJURY
     Dosage: PROPOFOL - MEAN DOSE
     Route: 042
  2. PROPOFOL [Suspect]
     Indication: SEDATION
     Dosage: PROPOFOL - MEAN DOSE
     Route: 042

REACTIONS (3)
  - HYPERLIPIDAEMIA [None]
  - PROPOFOL INFUSION SYNDROME [None]
  - BRAIN HERNIATION [None]
